FAERS Safety Report 4882154-6 (Version None)
Quarter: 2006Q1

REPORT INFORMATION
  Report Type: 
  Country: None (occurrence: None)
  Receive Date: 20060117
  Receipt Date: 20051207
  Transmission Date: 20060701
  Serious: Yes (Other)
  Sender: FDA-Public Use
  Company Number: US-MERCK-0512USA00951

PATIENT
  Age: 50 Year
  Sex: Female

DRUGS (7)
  1. VIOXX [Suspect]
     Indication: INFLAMMATION
     Route: 048
     Dates: start: 19980101, end: 20040701
  2. VIOXX [Suspect]
     Indication: PAIN
     Route: 048
     Dates: start: 19980101, end: 20040701
  3. BENTYL [Concomitant]
     Route: 065
  4. PREMARIN [Concomitant]
     Route: 065
  5. COUMADIN [Concomitant]
     Route: 065
  6. PRILOSEC [Concomitant]
     Indication: INFLAMMATION
     Route: 065
  7. PRILOSEC [Concomitant]
     Indication: PAIN
     Route: 065

REACTIONS (1)
  - CEREBROVASCULAR ACCIDENT [None]
